FAERS Safety Report 24440450 (Version 1)
Quarter: 2024Q4

REPORT INFORMATION
  Report Type: Spontaneous
  Country: GB (occurrence: GB)
  Receive Date: 20241016
  Receipt Date: 20241016
  Transmission Date: 20250114
  Serious: Yes (Hospitalization)
  Sender: STRIDES
  Company Number: GB-STRIDES ARCOLAB LIMITED-2024SP013174

PATIENT

DRUGS (2)
  1. PHENOBARBITAL [Interacting]
     Active Substance: PHENOBARBITAL
     Indication: Inappropriate antidiuretic hormone secretion
     Dosage: 1.7 GRAM PER KILOGRAM, QD
     Route: 065
  2. TOLVAPTAN [Interacting]
     Active Substance: TOLVAPTAN
     Indication: Inappropriate antidiuretic hormone secretion
     Dosage: 1.3 MILLIGRAM/KILOGRAM, QD
     Route: 065

REACTIONS (5)
  - Hyponatraemia [Unknown]
  - Drug interaction [Unknown]
  - Hypervolaemia [Unknown]
  - Oedema [Unknown]
  - Off label use [Unknown]
